FAERS Safety Report 14229708 (Version 1)
Quarter: 2017Q4

REPORT INFORMATION
  Report Type: Spontaneous
  Country: US (occurrence: None)
  Receive Date: 20171127
  Receipt Date: 20171127
  Transmission Date: 20180321
  Serious: Yes (Hospitalization)
  Sender: FDA-Public Use
  Company Number: None

PATIENT
  Age: 77 Year
  Sex: Male
  Weight: 76.6 kg

DRUGS (1)
  1. CEFUROXIME. [Suspect]
     Active Substance: CEFUROXIME
     Indication: INFECTION
     Route: 048
     Dates: start: 20170826, end: 20170828

REACTIONS (6)
  - Rash [None]
  - Urticaria [None]
  - Angioedema [None]
  - Pharyngeal oedema [None]
  - Dysphagia [None]
  - Lip swelling [None]

NARRATIVE: CASE EVENT DATE: 20170829
